FAERS Safety Report 8197526-4 (Version None)
Quarter: 2012Q1

REPORT INFORMATION
  Report Type: 
  Country: None (occurrence: None)
  Receive Date: 20120309
  Receipt Date: 20120229
  Transmission Date: 20120608
  Serious: Yes (Other)
  Sender: FDA-Public Use
  Company Number: CN-MILLENNIUM PHARMACEUTICALS, INC.-2012-01726

PATIENT

DRUGS (4)
  1. VINCRISTINE [Concomitant]
     Indication: MULTIPLE MYELOMA
  2. DEXAMETHASONE [Concomitant]
     Indication: MULTIPLE MYELOMA
  3. ADRIAMYCIN PFS [Concomitant]
     Indication: MULTIPLE MYELOMA
  4. VELCADE [Suspect]
     Indication: MULTIPLE MYELOMA
     Route: 065

REACTIONS (10)
  - GASTROINTESTINAL DISORDER [None]
  - DECREASED APPETITE [None]
  - DIARRHOEA [None]
  - THROMBOCYTOPENIA [None]
  - PAIN [None]
  - NAUSEA [None]
  - NEUROPATHY PERIPHERAL [None]
  - SENSORY LOSS [None]
  - LUNG INFECTION [None]
  - INFECTION [None]
